FAERS Safety Report 19191937 (Version 1)
Quarter: 2021Q2

REPORT INFORMATION
  Report Type: Spontaneous
  Country: CN (occurrence: CN)
  Receive Date: 20210429
  Receipt Date: 20210429
  Transmission Date: 20210717
  Serious: Yes (Life-Threatening)
  Sender: FDA-Public Use
  Company Number: CN-ROCHE-2817184

PATIENT
  Age: 70 Year
  Sex: Female
  Weight: 34 kg

DRUGS (1)
  1. MABTHERA [Suspect]
     Active Substance: RITUXIMAB
     Indication: DIFFUSE LARGE B-CELL LYMPHOMA
     Dosage: PUMP INJECTION INJECTION
     Route: 042
     Dates: start: 20210409, end: 20210409

REACTIONS (3)
  - Chills [Recovering/Resolving]
  - Hypoxia [Recovering/Resolving]
  - Palpitations [Recovering/Resolving]

NARRATIVE: CASE EVENT DATE: 20210409
